FAERS Safety Report 6316894-9 (Version None)
Quarter: 2009Q3

REPORT INFORMATION
  Report Type: 
  Country: None (occurrence: None)
  Receive Date: 20090820
  Receipt Date: 20090812
  Transmission Date: 20100115
  Serious: No
  Sender: FDA-Public Use
  Company Number: KR-ELI_LILLY_AND_COMPANY-KR200907000312

PATIENT
  Age: 76 Year
  Sex: Female

DRUGS (2)
  1. HUMALOG MIX 75/25 [Suspect]
     Indication: TYPE 2 DIABETES MELLITUS
     Dosage: 60 IU, DAILY (1/D)
     Route: 058
     Dates: start: 20090520
  2. ANTIHYPERTENSIVES [Concomitant]

REACTIONS (1)
  - HEADACHE [None]
